FAERS Safety Report 8225266-1 (Version None)
Quarter: 2012Q1

REPORT INFORMATION
  Report Type: 
  Country: None (occurrence: None)
  Receive Date: 20120321
  Receipt Date: 20120307
  Transmission Date: 20120608
  Serious: Yes (Other)
  Sender: FDA-Public Use
  Company Number: FR-MYLANLABS-2011S1019077

PATIENT
  Age: 26 Year
  Sex: Female
  Weight: 75 kg

DRUGS (8)
  1. METHADONE HCL [Interacting]
     Route: 048
  2. AMIKACIN [Concomitant]
     Dosage: DRUG WITHDRAWN
     Route: 065
  3. ESOMEPRAZOLE SODIUM [Interacting]
     Route: 065
  4. LEVOFLOXACIN [Concomitant]
     Dosage: DRUG WITHDRAWN
     Route: 065
  5. VANCOMYCIN [Concomitant]
     Route: 065
  6. METHADONE HCL [Interacting]
     Route: 048
  7. IMIPENEM [Concomitant]
     Route: 065
  8. VORICONAZOLE [Suspect]
     Indication: ASPERGILLOSIS
     Dosage: 2 X 450MG ON DAY 1, THEN 300MG BID
     Route: 042
     Dates: start: 20090421

REACTIONS (2)
  - DRUG INTERACTION [None]
  - ARRHYTHMIA SUPRAVENTRICULAR [None]
